FAERS Safety Report 20321097 (Version 1)
Quarter: 2022Q1

REPORT INFORMATION
  Report Type: Spontaneous
  Country: ES (occurrence: ES)
  Receive Date: 20220111
  Receipt Date: 20220111
  Transmission Date: 20220424
  Serious: Yes (Hospitalization)
  Sender: FDA-Public Use
  Company Number: None

PATIENT
  Age: 88 Year
  Sex: Female
  Weight: 75 kg

DRUGS (3)
  1. PREGABALIN [Suspect]
     Active Substance: PREGABALIN
     Indication: Pain
     Dosage: 200 MILLIGRAM DAILY; 1-0-1,PREGABALIN 100 MG TABLET
     Route: 048
     Dates: start: 20181003, end: 20211111
  2. BUPRENORPHINE [Suspect]
     Active Substance: BUPRENORPHINE
     Indication: Pain
     Dosage: 1/8 EVERY 4 DAYS
     Route: 062
     Dates: start: 20210924, end: 20211104
  3. FUROSEMIDE [Concomitant]
     Active Substance: FUROSEMIDE
     Indication: Cardiac failure
     Dosage: 1-0.5-0 (SINCE 10/30/21) PREVIOUSLY 1-0-0,FUROSEMIDE (1615A)
     Route: 048
     Dates: start: 20170113

REACTIONS (1)
  - Cardiac failure congestive [Recovered/Resolved]

NARRATIVE: CASE EVENT DATE: 20211104
